FAERS Safety Report 12257068 (Version 1)
Quarter: 2016Q2

REPORT INFORMATION
  Report Type: Spontaneous
  Country: ES (occurrence: ES)
  Receive Date: 20160412
  Receipt Date: 20160412
  Transmission Date: 20160815
  Serious: Yes (Hospitalization)
  Sender: FDA-Public Use
  Company Number: ES-MYLANLABS-2016M1014718

PATIENT

DRUGS (3)
  1. LINEZOLID. [Suspect]
     Active Substance: LINEZOLID
     Indication: ABDOMINAL INFECTION
     Dosage: 600 MG, BID
     Route: 042
  2. ALBENDAZOLE [Concomitant]
     Active Substance: ALBENDAZOLE
     Indication: ABDOMINAL INFECTION
     Dosage: 400 MG, BID
     Route: 048
  3. IMIPENEM [Concomitant]
     Active Substance: IMIPENEM
     Indication: ABDOMINAL INFECTION
     Dosage: 500 MG, BID
     Route: 042

REACTIONS (3)
  - Thrombocytopenia [Recovering/Resolving]
  - Toxicity to various agents [Recovering/Resolving]
  - Tremor [Recovering/Resolving]
